FAERS Safety Report 24088219 (Version 1)
Quarter: 2024Q3

REPORT INFORMATION
  Report Type: Spontaneous
  Country: NL (occurrence: NL)
  Receive Date: 20240715
  Receipt Date: 20240715
  Transmission Date: 20241016
  Serious: Yes (Hospitalization, Other)
  Sender: AMGEN
  Company Number: NL-AMGEN-NLDSP2024132578

PATIENT
  Age: 62 Year
  Sex: Male

DRUGS (4)
  1. ECULIZUMAB [Suspect]
     Active Substance: ECULIZUMAB
     Indication: Autoimmune haemolytic anaemia
     Dosage: UNK
     Route: 065
  2. RITUXIMAB [Concomitant]
     Active Substance: RITUXIMAB
     Indication: Autoimmune haemolytic anaemia
     Dosage: UNK
     Route: 065
  3. HUMAN IMMUNOGLOBULIN G [Concomitant]
     Active Substance: HUMAN IMMUNOGLOBULIN G
     Indication: Autoimmune haemolytic anaemia
     Dosage: UNK
     Route: 042
  4. DARATUMUMAB [Concomitant]
     Active Substance: DARATUMUMAB
     Indication: Autoimmune haemolytic anaemia
     Dosage: 1800 MILLIGRAM, Q8WK
     Route: 058

REACTIONS (7)
  - COVID-19 [Unknown]
  - Febrile neutropenia [Unknown]
  - Pneumonia [Unknown]
  - Anal abscess [Unknown]
  - Bacterial sepsis [Unknown]
  - Varicella zoster virus infection [Unknown]
  - Off label use [Unknown]
